FAERS Safety Report 6103516-5 (Version None)
Quarter: 2009Q1

REPORT INFORMATION
  Report Type: 
  Country: None (occurrence: None)
  Receive Date: 20090305
  Receipt Date: 20090202
  Transmission Date: 20090719
  Serious: No
  Sender: FDA-Public Use
  Company Number: US-BAYER-200811192BCC

PATIENT
  Sex: Female
  Weight: 77 kg

DRUGS (3)
  1. ALEVE [Suspect]
     Indication: ARTHRITIS
     Dosage: AS USED: 220 MG  UNIT DOSE: 220 MG
     Route: 048
  2. PERCOCET [Concomitant]
  3. OXYCONTIN [Concomitant]

REACTIONS (2)
  - JOINT SWELLING [None]
  - WEIGHT INCREASED [None]
